FAERS Safety Report 12836228 (Version 1)
Quarter: 2016Q4

REPORT INFORMATION
  Report Type: Spontaneous
  Country: JP (occurrence: JP)
  Receive Date: 20161011
  Receipt Date: 20161011
  Transmission Date: 20170207
  Serious: Yes (Other)
  Sender: FDA-Public Use
  Company Number: JP-GLAXOSMITHKLINE-JP2016JPN145419

PATIENT
  Sex: Male

DRUGS (4)
  1. URIEF [Concomitant]
     Active Substance: SILODOSIN
     Dosage: UNK
  2. METFORMIN HYDROCHLORIDE. [Concomitant]
     Active Substance: METFORMIN HYDROCHLORIDE
     Dosage: UNK
  3. SUINY [Concomitant]
     Active Substance: ANAGLIPTIN
     Dosage: UNK
  4. AVOLVE [Suspect]
     Active Substance: DUTASTERIDE
     Dosage: 0.5 MG, QD
     Route: 048

REACTIONS (2)
  - Diabetes mellitus [Unknown]
  - Glycosylated haemoglobin increased [Not Recovered/Not Resolved]
